FAERS Safety Report 9600873 (Version 1)
Quarter: 2013Q4

REPORT INFORMATION
  Report Type: Spontaneous
  Country: US (occurrence: US)
  Receive Date: 20131004
  Receipt Date: 20131004
  Transmission Date: 20140711
  Serious: No
  Sender: FDA-Public Use
  Company Number: US-AMGEN-USASP2013036428

PATIENT
  Age: 50 Year
  Sex: Female
  Weight: 54.42 kg

DRUGS (5)
  1. ENBREL [Suspect]
     Indication: PRODUCT USED FOR UNKNOWN INDICATION
     Dosage: 50 MG, 2 TIMES/WK
     Route: 058
  2. VITAMIN D3 [Concomitant]
     Dosage: 10000 UNIT, UNK
  3. VITAMIN B12                        /00056201/ [Concomitant]
     Dosage: 1000 MUG, UNK
  4. CALCIUM [Concomitant]
     Dosage: 500 UNK, UNK
  5. ATORVASTATIN [Concomitant]
     Dosage: 10 MG, UNK

REACTIONS (2)
  - Blood cholesterol increased [Unknown]
  - Psoriasis [Unknown]
